FAERS Safety Report 9506201 (Version 1)
Quarter: 2013Q1

REPORT INFORMATION
  Report Type: Spontaneous
  Country: US (occurrence: None)
  Receive Date: 20130301
  Receipt Date: 20130301
  Transmission Date: 20140127
  Serious: No
  Sender: FDA-Public Use
  Company Number: 430288

PATIENT
  Age: 17 Month
  Sex: Male
  Weight: 7.7 kg

DRUGS (1)
  1. ROCURONIUM BROMIDE [Suspect]
     Indication: PRODUCT USED FOR UNKNOWN INDICATION
     Route: 042
     Dates: start: 20091112, end: 20091112

REACTIONS (1)
  - Drug effect increased [None]
